FAERS Safety Report 8672005 (Version 2)
Quarter: 2013Q4

REPORT INFORMATION
  Report Type: Spontaneous
  Country: US (occurrence: US)
  Receive Date: 20120719
  Receipt Date: 20131101
  Transmission Date: 20140711
  Serious: No
  Sender: FDA-Public Use
  Company Number: US-009507513-1207USA003862

PATIENT
  Sex: Female

DRUGS (4)
  1. VICTRELIS [Suspect]
     Indication: CHRONIC HEPATITIS C
     Dosage: 800 MG, TID
     Route: 048
     Dates: start: 20120220
  2. RIBASPHERE [Suspect]
     Dosage: 600 MG, UNK
  3. RIBASPHERE [Suspect]
     Dosage: 400 MG, UNK
  4. PEGASYS [Suspect]

REACTIONS (1)
  - Anaemia [Recovering/Resolving]
